FAERS Safety Report 13678147 (Version 1)
Quarter: 2017Q2

REPORT INFORMATION
  Report Type: Spontaneous
  Country: US (occurrence: US)
  Receive Date: 20170621
  Receipt Date: 20170621
  Transmission Date: 20170830
  Serious: Yes (Disabling)
  Sender: FDA-Public Use
  Company Number: None

PATIENT
  Age: 66 Year
  Sex: Male
  Weight: 78.75 kg

DRUGS (11)
  1. CREON [Suspect]
     Active Substance: PANCRELIPASE AMYLASE\PANCRELIPASE LIPASE\PANCRELIPASE PROTEASE
     Indication: GASTROINTESTINAL DISORDER
     Dosage: ?          OTHER STRENGTH:USP;QUANTITY:1 CAPSULE(S);OTHER FREQUENCY:2MEALS 1 SNACKS;?
     Route: 048
     Dates: start: 20170201
  2. DAILY MULTIVITAMIN [Concomitant]
     Active Substance: VITAMINS
  3. ECOTRIN [Concomitant]
     Active Substance: ASPIRIN
  4. VIAGRA [Concomitant]
     Active Substance: SILDENAFIL CITRATE
  5. CARVEDILOL. [Concomitant]
     Active Substance: CARVEDILOL
  6. HUMALOG [Concomitant]
     Active Substance: INSULIN LISPRO
  7. ATORVASTATIN [Concomitant]
     Active Substance: ATORVASTATIN
  8. AMITRIPTYLINE [Concomitant]
     Active Substance: AMITRIPTYLINE
  9. LEVOTHYROXINE. [Concomitant]
     Active Substance: LEVOTHYROXINE
  10. HYDROCHLOROTHIAZIDE. [Concomitant]
     Active Substance: HYDROCHLOROTHIAZIDE
  11. LOSARTAN. [Concomitant]
     Active Substance: LOSARTAN

REACTIONS (4)
  - Decreased appetite [None]
  - Cough [None]
  - Dyspnoea [None]
  - Blood glucose increased [None]

NARRATIVE: CASE EVENT DATE: 20170601
